FAERS Safety Report 7122871-0 (Version None)
Quarter: 2010Q4

REPORT INFORMATION
  Report Type: 
  Country: None (occurrence: None)
  Receive Date: 20101124
  Receipt Date: 20101118
  Transmission Date: 20110411
  Serious: Yes (Hospitalization)
  Sender: FDA-Public Use
  Company Number: JP-ABBOTT-10P-087-0687460-00

PATIENT
  Sex: Male

DRUGS (7)
  1. HUMIRA [Suspect]
     Indication: CROHN'S DISEASE
     Route: 058
     Dates: start: 20101116
  2. MESALAZINE [Concomitant]
     Indication: CROHN'S DISEASE
  3. MERCAPTOPURINE HYDRATE [Concomitant]
     Indication: CROHN'S DISEASE
  4. LACTOMIN [Concomitant]
     Indication: CROHN'S DISEASE
  5. CHINESE MEDICINE [Concomitant]
     Indication: CROHN'S DISEASE
  6. ETIZOLAM [Concomitant]
     Indication: PRODUCT USED FOR UNKNOWN INDICATION
  7. KETOPROFEN [Concomitant]
     Indication: PRODUCT USED FOR UNKNOWN INDICATION

REACTIONS (2)
  - HEADACHE [None]
  - MALAISE [None]
